FAERS Safety Report 7946937-8 (Version None)
Quarter: 2011Q4

REPORT INFORMATION
  Report Type: 
  Country: None (occurrence: None)
  Receive Date: 20111129
  Receipt Date: 20050510
  Transmission Date: 20120403
  Serious: Yes (Other)
  Sender: FDA-Public Use
  Company Number: PHHY2005BR006991

PATIENT
  Sex: Female
  Weight: 82 kg

DRUGS (2)
  1. EXFORGE [Suspect]
     Indication: HYPERTENSION
     Dosage: 160/5 MG, QD
     Route: 048
     Dates: end: 20050506
  2. PROPRANOLOL [Concomitant]
     Indication: HYPERTENSION
     Dosage: 40 MG, BID

REACTIONS (3)
  - DYSPNOEA [None]
  - HYPOTENSION [None]
  - DIZZINESS [None]
